FAERS Safety Report 8054161-6 (Version None)
Quarter: 2012Q1

REPORT INFORMATION
  Report Type: 
  Country: None (occurrence: None)
  Receive Date: 20120118
  Receipt Date: 20120110
  Transmission Date: 20120608
  Serious: Yes (Death, Life-Threatening, Hospitalization, Other)
  Sender: FDA-Public Use
  Company Number: MX-BRISTOL-MYERS SQUIBB COMPANY-15952419

PATIENT
  Age: 62 Year
  Sex: Male
  Weight: 85 kg

DRUGS (2)
  1. PLAVIX [Suspect]
     Indication: ANGINA PECTORIS
     Dosage: 2007-27JUL2011:75MG AUG2011-17NOV2011:75MG
     Route: 048
     Dates: start: 20070101, end: 20111117
  2. IRBESARTAN [Suspect]
     Indication: HYPERTENSION
     Dosage: 2007-27JUL2011:150MG AUG2011-17NOV2011:150MG
     Route: 048
     Dates: start: 20070101, end: 20111117

REACTIONS (5)
  - CHEST PAIN [None]
  - PARAESTHESIA [None]
  - HYPERHIDROSIS [None]
  - ANXIETY [None]
  - MYOCARDIAL INFARCTION [None]
